FAERS Safety Report 7174554-9 (Version None)
Quarter: 2010Q4

REPORT INFORMATION
  Report Type: 
  Country: None (occurrence: None)
  Receive Date: 20101219
  Receipt Date: 20100401
  Transmission Date: 20110411
  Serious: No
  Sender: FDA-Public Use
  Company Number: US-AMGEN-KDL395160

PATIENT

DRUGS (3)
  1. ENBREL [Suspect]
     Indication: PSORIATIC ARTHROPATHY
     Dosage: 50 MG, QWK
     Route: 058
     Dates: start: 20090327
  2. LEFLUNOMIDE [Concomitant]
     Dosage: 20 MG, QWK
  3. HYDROXYCHLOROQUINE [Concomitant]
     Dosage: 30 MG, BID

REACTIONS (14)
  - BURNING SENSATION [None]
  - CHEST PAIN [None]
  - COUGH [None]
  - INFECTION [None]
  - INFLUENZA [None]
  - INJECTION SITE ERYTHEMA [None]
  - INJECTION SITE PAIN [None]
  - INJECTION SITE PRURITUS [None]
  - INJECTION SITE REACTION [None]
  - INJECTION SITE SWELLING [None]
  - MYALGIA [None]
  - OROPHARYNGEAL PAIN [None]
  - RASH ERYTHEMATOUS [None]
  - SINUSITIS [None]
